FAERS Safety Report 19026487 (Version 1)
Quarter: 2021Q1

REPORT INFORMATION
  Report Type: Report from Study
  Country: US (occurrence: US)
  Receive Date: 20210318
  Receipt Date: 20210318
  Transmission Date: 20210420
  Serious: Yes (Hospitalization)
  Sender: FDA-Public Use
  Company Number: US-PACIRA-2021000210

PATIENT
  Age: 71 Year
  Sex: Male
  Weight: 88 kg

DRUGS (16)
  1. PROPOFOL. [Concomitant]
     Active Substance: PROPOFOL
     Indication: INTRAOPERATIVE CARE
     Dosage: NOT REPORTED
     Route: 065
  2. ULTRAM [Concomitant]
     Active Substance: TRAMADOL HYDROCHLORIDE
     Indication: POSTOPERATIVE ANALGESIA
     Dosage: 12:39AM, 4:56AM, 9:12AM, 12:42PM??50 MG
     Route: 065
     Dates: start: 20190927
  3. ULTRAM [Concomitant]
     Active Substance: TRAMADOL HYDROCHLORIDE
     Indication: POSTOPERATIVE ANALGESIA
     Dosage: 1?2 TABLETS BY MOUTH EVERY 4 HOURS AS NEEDED AT DISCHARGE. NO EXCEED 8 TABLETS (400 MG) IN ONE DAY
     Route: 048
  4. SUBLIMAZE [Concomitant]
     Active Substance: FENTANYL CITRATE
     Indication: POSTOPERATIVE ANALGESIA
     Dosage: 10:46AM, 10:50AM, 10:53AM, 11:09AM??25 MCG
     Route: 042
     Dates: start: 20190920
  5. MIDAZOLAM. [Concomitant]
     Active Substance: MIDAZOLAM
     Indication: INTRAOPERATIVE CARE
     Dosage: NOT REPORTED
     Route: 065
  6. ONDANSETRON [Concomitant]
     Active Substance: ONDANSETRON
     Indication: INTRAOPERATIVE CARE
     Dosage: NOT REPORTED
     Route: 065
  7. EXPAREL [Suspect]
     Active Substance: BUPIVACAINE
     Indication: POSTOPERATIVE ANALGESIA
     Dosage: 2019 20ML EXPAREL AND 40ML SALINE TOTAL VOLUME 60ML
     Route: 065
  8. TYLENOL [Concomitant]
     Active Substance: ACETAMINOPHEN
     Indication: INTRAOPERATIVE CARE
     Dosage: NOT REPORTED
     Route: 042
  9. DEXAMETHASONE. [Concomitant]
     Active Substance: DEXAMETHASONE
     Indication: INTRAOPERATIVE CARE
     Dosage: NOT REPORTED
     Route: 065
  10. BUPIVACAINE. [Suspect]
     Active Substance: BUPIVACAINE
     Indication: POSTOPERATIVE ANALGESIA
     Dosage: 2019; 30ML
     Route: 065
  11. ULTRAM [Concomitant]
     Active Substance: TRAMADOL HYDROCHLORIDE
     Indication: POSTOPERATIVE ANALGESIA
     Dosage: 12:42PM, 5:28PM??50 MG
     Route: 065
     Dates: start: 20190926
  12. SALINE [Concomitant]
     Active Substance: SODIUM CHLORIDE
     Indication: POSTOPERATIVE ANALGESIA
     Dosage: 2019; 40ML WITH 20ML EXPAREL. TOTAL VOLUME 60ML
     Route: 065
  13. METOCLOPRAMI [Concomitant]
     Indication: INTRAOPERATIVE CARE
     Dosage: NOT REPORTED
     Route: 065
  14. MORPHINE [Concomitant]
     Active Substance: MORPHINE
     Indication: INTRAOPERATIVE CARE
     Dosage: NOT REPORTED
     Route: 065
  15. OXYGEN. [Concomitant]
     Active Substance: OXYGEN
     Indication: INTRAOPERATIVE CARE
     Dosage: NOT REPORTED
     Route: 065
  16. CELEBREX [Concomitant]
     Active Substance: CELECOXIB
     Indication: PREOPERATIVE CARE
     Dosage: NOT PROVIDED
     Route: 065

REACTIONS (1)
  - Osteoarthritis [Unknown]
